FAERS Safety Report 5293573-0 (Version None)
Quarter: 2007Q2

REPORT INFORMATION
  Report Type: 
  Country: None (occurrence: None)
  Receive Date: 20070411
  Receipt Date: 20070406
  Transmission Date: 20071010
  Serious: Yes (Death, Life-Threatening)
  Sender: FDA-Public Use
  Company Number: FRWYE380306APR07

PATIENT
  Age: 49 Year
  Sex: Male

DRUGS (13)
  1. GEMTUZUMAB OZOGAMICIN [Suspect]
     Indication: ACUTE MYELOID LEUKAEMIA
     Dosage: UNKNOWN
     Route: 042
     Dates: start: 20070206, end: 20070206
  2. ACYCLOVIR [Suspect]
     Dosage: 250 MG TOTAL DAILY
     Route: 042
     Dates: start: 20070207, end: 20070220
  3. VANCOMYCIN [Suspect]
     Dosage: 2.5 G TOTAL DAILY
     Route: 042
     Dates: start: 20070210, end: 20070223
  4. FLUDARABINE PHOSPHATE [Suspect]
     Indication: ACUTE MYELOID LEUKAEMIA
     Dosage: UNKNOWN
     Route: 042
     Dates: start: 20070206, end: 20070210
  5. IDARUBICIN HCL [Suspect]
     Indication: ACUTE MYELOID LEUKAEMIA
     Dosage: UNKNOWN
     Dates: start: 20070208, end: 20070209
  6. INIPOMP [Concomitant]
     Dosage: UNKNOWN
  7. CONTRAMAL [Concomitant]
     Dosage: UNKNOWN
  8. CIPROFLOXACIN HCL [Concomitant]
     Dosage: UNKNOWN
  9. ZOPHREN [Concomitant]
     Dosage: UNKNOWN
  10. FUROSEMIDE [Concomitant]
     Dosage: UNKNOWN
  11. PERFALGAN [Concomitant]
     Dosage: UNKNOWN
  12. CYTARABINE [Suspect]
     Indication: ACUTE MYELOID LEUKAEMIA
     Dosage: UNKNOWN
     Route: 042
     Dates: start: 20070206, end: 20070210
  13. GENTAMICIN [Concomitant]
     Dosage: UNKNOWN

REACTIONS (3)
  - DISEASE PROGRESSION [None]
  - MULTI-ORGAN FAILURE [None]
  - VENOOCCLUSIVE LIVER DISEASE [None]
